FAERS Safety Report 9807867 (Version 1)
Quarter: 2014Q1

REPORT INFORMATION
  Report Type: Not Available
  Country: GB (occurrence: GB)
  Receive Date: 20140110
  Receipt Date: 20140110
  Transmission Date: 20141002
  Serious: Yes (Disabling)
  Sender: FDA-Public Use
  Company Number: GB-ASTELLAS-2014EU000125

PATIENT
  Age: 80 Year
  Sex: Male
  Weight: 74 kg

DRUGS (5)
  1. ENZALUTAMIDE [Suspect]
     Dosage: UNK
     Route: 065
     Dates: start: 20131220
  2. ASPIRIN [Concomitant]
     Dosage: UNK
     Route: 065
     Dates: start: 20130904
  3. LORATADINE [Concomitant]
     Dosage: UNK
     Route: 065
     Dates: start: 20130904, end: 20131004
  4. PROSTAP [Concomitant]
     Dosage: UNK
     Route: 065
     Dates: start: 20130819
  5. RABEPRAZOLE [Concomitant]
     Dosage: UNK
     Route: 065
     Dates: start: 20130904

REACTIONS (5)
  - Back pain [Not Recovered/Not Resolved]
  - Gait disturbance [Not Recovered/Not Resolved]
  - Memory impairment [Not Recovered/Not Resolved]
  - Arthralgia [Recovered/Resolved]
  - Musculoskeletal pain [Not Recovered/Not Resolved]
